FAERS Safety Report 10463413 (Version 1)
Quarter: 2014Q3

REPORT INFORMATION
  Report Type: Spontaneous
  Country: US (occurrence: None)
  Receive Date: 20140918
  Receipt Date: 20140918
  Transmission Date: 20150326
  Serious: Yes (Other)
  Sender: FDA-Public Use
  Company Number: None

PATIENT
  Age: 32 Year
  Sex: Male
  Weight: 99.2 kg

DRUGS (14)
  1. DOCUSATE [Concomitant]
     Active Substance: DOCUSATE
  2. OXALIPLATIN. [Concomitant]
     Active Substance: OXALIPLATIN
  3. IBUPROFEN. [Concomitant]
     Active Substance: IBUPROFEN
  4. OXYCODONE [Concomitant]
     Active Substance: OXYCODONE
  5. AFLIBERCEPT [Suspect]
     Active Substance: AFLIBERCEPT
     Indication: COLORECTAL CANCER METASTATIC
     Dosage: 4MG/KG, TOTAL OF 410 MG?EVERY OF 410 MG?I/V
     Route: 042
     Dates: start: 20140429, end: 20140902
  6. ALPRAZOLAM. [Concomitant]
     Active Substance: ALPRAZOLAM
  7. 5FU [Concomitant]
     Active Substance: FLUOROURACIL
  8. SUMATRIPATAN [Concomitant]
  9. AMLODIPINE [Concomitant]
     Active Substance: AMLODIPINE BESYLATE
  10. LOPERAMIDE [Concomitant]
     Active Substance: LOPERAMIDE
  11. OMEPRAZOLE. [Concomitant]
     Active Substance: OMEPRAZOLE
  12. PROCHOLOPERAZINE [Concomitant]
  13. ENOXAPRIN [Concomitant]
  14. LEUCOVORIN [Concomitant]
     Active Substance: LEUCOVORIN

REACTIONS (1)
  - Hyperlipidaemia [None]

NARRATIVE: CASE EVENT DATE: 20140722
